FAERS Safety Report 20163389 (Version 1)
Quarter: 2021Q4

REPORT INFORMATION
  Report Type: Spontaneous
  Country: BO (occurrence: BO)
  Receive Date: 20211209
  Receipt Date: 20211209
  Transmission Date: 20220304
  Serious: Yes (Hospitalization, Other)
  Sender: FDA-Public Use
  Company Number: BO-NOVARTISPH-NVSC2020BO285322

PATIENT
  Age: 2 Year
  Sex: Male

DRUGS (2)
  1. GLIVEC [Suspect]
     Active Substance: IMATINIB MESYLATE
     Indication: Chronic myeloid leukaemia
     Dosage: 300 MG, QD (3 OF 100MG)
     Route: 048
  2. HYDROXYUREA [Concomitant]
     Active Substance: HYDROXYUREA
     Indication: Product used for unknown indication
     Dosage: 500 MG, Q8H
     Route: 065

REACTIONS (6)
  - Haematology test abnormal [Unknown]
  - Infection [Unknown]
  - Chronic myeloid leukaemia [Unknown]
  - Hyperleukocytosis [Unknown]
  - Therapy non-responder [Unknown]
  - Incorrect dose administered [Unknown]

NARRATIVE: CASE EVENT DATE: 20200417
